FAERS Safety Report 23688938 (Version 3)
Quarter: 2024Q2

REPORT INFORMATION
  Report Type: Report from Study
  Country: US (occurrence: US)
  Receive Date: 20240329
  Receipt Date: 20240429
  Transmission Date: 20240717
  Serious: Yes (Hospitalization)
  Sender: FDA-Public Use
  Company Number: US-Eisai-EC-2024-162027

PATIENT
  Age: 52 Year
  Sex: Male
  Weight: 129.7 kg

DRUGS (15)
  1. LENVIMA [Suspect]
     Active Substance: LENVATINIB
     Indication: Hepatic cancer
     Route: 048
     Dates: start: 20240303
  2. PANTOPRAZOLE SODIUM [Concomitant]
     Active Substance: PANTOPRAZOLE SODIUM
  3. IBUPROFEN [Concomitant]
     Active Substance: IBUPROFEN
  4. ASPIRIN [Concomitant]
     Active Substance: ASPIRIN
  5. SEMGLEE [Concomitant]
     Dosage: DOSE: 100MG/ML VIAL
  6. MONJUVI [Concomitant]
     Active Substance: TAFASITAMAB-CXIX
     Dosage: DOSE: 200MG VIAL
  7. HUMALOG [Concomitant]
     Active Substance: INSULIN LISPRO
     Dosage: DOSE: 100/ML UNITS
  8. HYDRALAZINE [Concomitant]
     Active Substance: HYDRALAZINE HYDROCHLORIDE
  9. LISINOPRIL [Concomitant]
     Active Substance: LISINOPRIL
  10. AMLODIPINE BESYLATE [Concomitant]
     Active Substance: AMLODIPINE BESYLATE
  11. METFORMIN HYDROCHLORIDE [Concomitant]
     Active Substance: METFORMIN HYDROCHLORIDE
  12. JARDIANCE [Concomitant]
     Active Substance: EMPAGLIFLOZIN
  13. GABAPENTIN [Concomitant]
     Active Substance: GABAPENTIN
  14. FAMOTIDINE [Concomitant]
     Active Substance: FAMOTIDINE
  15. ATORVASTATIN CALCIUM [Concomitant]
     Active Substance: ATORVASTATIN CALCIUM

REACTIONS (4)
  - Gastrointestinal haemorrhage [Unknown]
  - Cardiac disorder [Unknown]
  - Blood pressure increased [Not Recovered/Not Resolved]
  - Fatigue [Not Recovered/Not Resolved]

NARRATIVE: CASE EVENT DATE: 20240301
